FAERS Safety Report 10662974 (Version 7)
Quarter: 2019Q4

REPORT INFORMATION
  Report Type: Spontaneous
  Country: FR (occurrence: FR)
  Receive Date: 20141218
  Receipt Date: 20191216
  Transmission Date: 20200122
  Serious: Yes (Hospitalization, Congenital Anomaly)
  Sender: FDA-Public Use
  Company Number: FR-ABBVIE-14P-056-1322705-00

PATIENT
  Sex: Female

DRUGS (3)
  1. TEGRETOL [Suspect]
     Active Substance: CARBAMAZEPINE
     Indication: MATERNAL EXPOSURE TIMING UNSPECIFIED
     Route: 064
     Dates: start: 1996
  2. DEPAKINE CHRONO [Suspect]
     Active Substance: VALPROATE SODIUM
     Indication: MATERNAL EXPOSURE TIMING UNSPECIFIED
     Route: 064
     Dates: start: 19960409, end: 19970117
  3. FOLIC ACID. [Concomitant]
     Active Substance: FOLIC ACID
     Indication: PRODUCT USED FOR UNKNOWN INDICATION
     Dates: start: 19960409, end: 19970117

REACTIONS (62)
  - Motor dysfunction [Unknown]
  - Behaviour disorder [Not Recovered/Not Resolved]
  - Anxiety [Not Recovered/Not Resolved]
  - Foetal exposure during pregnancy [Unknown]
  - Scoliosis [Unknown]
  - Cyst [Unknown]
  - Kyphosis [Unknown]
  - Bronchopneumopathy [Unknown]
  - Motor developmental delay [Unknown]
  - Strabismus [Unknown]
  - Cough [Unknown]
  - Dysmorphism [Unknown]
  - Educational problem [Unknown]
  - Ear disorder [Unknown]
  - Fatigue [Unknown]
  - Angina pectoris [Unknown]
  - Oropharyngeal pain [Unknown]
  - Congenital hand malformation [Unknown]
  - Cognitive disorder [Unknown]
  - Disturbance in attention [Unknown]
  - Bronchitis [Unknown]
  - Developmental delay [Not Recovered/Not Resolved]
  - Congenital musculoskeletal anomaly [Unknown]
  - Nasopharyngitis [Unknown]
  - Congenital scoliosis [Unknown]
  - Anodontia [Unknown]
  - Dyschromatopsia [Unknown]
  - Otitis media [Unknown]
  - Scoliosis [Recovered/Resolved]
  - Fear [Unknown]
  - Psychomotor retardation [Unknown]
  - Finger deformity [Unknown]
  - Speech disorder developmental [Unknown]
  - Intellectual disability [Unknown]
  - Nasal disorder [Unknown]
  - Lordosis [Unknown]
  - Echolalia [Unknown]
  - Learning disorder [Unknown]
  - Pharyngitis [Unknown]
  - Ill-defined disorder [Unknown]
  - Foot deformity [Unknown]
  - Developmental delay [Not Recovered/Not Resolved]
  - Rotavirus infection [Unknown]
  - Intellectual disability [Not Recovered/Not Resolved]
  - Mental disorder [Unknown]
  - Disturbance in attention [Unknown]
  - Adjustment disorder [Unknown]
  - Sleep disorder [Unknown]
  - Impulsive behaviour [Unknown]
  - Pharyngeal disorder [Unknown]
  - Synovial cyst [Unknown]
  - Rhinitis [Unknown]
  - Speech disorder developmental [Not Recovered/Not Resolved]
  - Memory impairment [Unknown]
  - Congenital foot malformation [Unknown]
  - Respiratory disorder [Unknown]
  - Reduced facial expression [Unknown]
  - Hypothyroidism [Unknown]
  - Tenosynovitis [Unknown]
  - Psychomotor hyperactivity [Not Recovered/Not Resolved]
  - Visual impairment [Unknown]
  - Back disorder [Unknown]

NARRATIVE: CASE EVENT DATE: 1997
